FAERS Safety Report 5085209-9 (Version None)
Quarter: 2006Q3

REPORT INFORMATION
  Report Type: 
  Country: None (occurrence: None)
  Receive Date: 20060816
  Receipt Date: 20060803
  Transmission Date: 20061208
  Serious: Yes (Hospitalization)
  Sender: FDA-Public Use
  Company Number: 2006RR-03215

PATIENT
  Age: 64 Year
  Sex: Male

DRUGS (6)
  1. CO-AMOXICLAV (CLAVULANIC ACID, AMOXICILLIN TRIHYDRATE)TABLET [Suspect]
     Dosage: 625 MG, TID, ORAL
     Route: 048
     Dates: start: 20060606, end: 20060610
  2. ENALAPRIL MALEATE TABLET [Concomitant]
  3. ESOMPRAZOLE (ESOMEPRAZOLE) [Concomitant]
  4. MELOXICAM (MELOXICAM) [Concomitant]
  5. NEORAL [Concomitant]
  6. QUININE SULFATE [Concomitant]

REACTIONS (2)
  - JAUNDICE [None]
  - LIVER FUNCTION TEST ABNORMAL [None]
